FAERS Safety Report 14150290 (Version 1)
Quarter: 2017Q4

REPORT INFORMATION
  Report Type: Spontaneous
  Country: US (occurrence: US)
  Receive Date: 20171101
  Receipt Date: 20171101
  Transmission Date: 20180321
  Serious: No
  Sender: FDA-Public Use
  Company Number: US-NOVOPROD-557901

PATIENT
  Age: 66 Year
  Sex: Female
  Weight: 58.5 kg

DRUGS (2)
  1. VAGIFEM LD [Suspect]
     Active Substance: ESTRADIOL
     Dosage: QW
     Route: 067
  2. VAGIFEM LD [Suspect]
     Active Substance: ESTRADIOL
     Indication: VULVOVAGINAL DRYNESS
     Dosage: BIW
     Route: 067

REACTIONS (5)
  - Thrombophlebitis superficial [Unknown]
  - Onychomycosis [Not Recovered/Not Resolved]
  - Withdrawal syndrome [Unknown]
  - Joint swelling [Not Recovered/Not Resolved]
  - Erythema [Not Recovered/Not Resolved]
